FAERS Safety Report 5744463-8 (Version None)
Quarter: 2008Q2

REPORT INFORMATION
  Report Type: 
  Country: None (occurrence: None)
  Receive Date: 20080520
  Receipt Date: 20080508
  Transmission Date: 20081010
  Serious: Yes (Hospitalization)
  Sender: FDA-Public Use
  Company Number: US-AMGEN-US276195

PATIENT
  Sex: Female

DRUGS (10)
  1. VECTIBIX [Suspect]
     Indication: COLORECTAL CANCER
     Route: 042
     Dates: start: 20080327, end: 20080410
  2. LOVENOX [Concomitant]
     Route: 058
     Dates: start: 20060101
  3. HYDROCHLOROTHIAZIDE [Concomitant]
     Route: 065
     Dates: start: 20080201
  4. TOPROL-XL [Concomitant]
     Route: 065
     Dates: start: 20050101
  5. ASPIRIN [Concomitant]
     Route: 065
     Dates: start: 20010101
  6. K-DUR [Concomitant]
     Route: 065
  7. MAGNESIUM OXIDE [Concomitant]
     Route: 065
  8. COMBIVENT [Concomitant]
     Route: 065
  9. VITAMIN CAP [Concomitant]
     Route: 065
  10. TYLENOL [Concomitant]
     Route: 065

REACTIONS (17)
  - BLOOD CREATININE INCREASED [None]
  - BLOOD MAGNESIUM DECREASED [None]
  - BLOOD UREA INCREASED [None]
  - DYSPNOEA EXERTIONAL [None]
  - EXTRASYSTOLES [None]
  - FACIAL PALSY [None]
  - FATIGUE [None]
  - MUCOSAL DRYNESS [None]
  - PALPITATIONS [None]
  - PLATELET COUNT INCREASED [None]
  - RASH ERYTHEMATOUS [None]
  - RASH MACULO-PAPULAR [None]
  - SENSATION OF HEAVINESS [None]
  - URINE ANALYSIS ABNORMAL [None]
  - URINE OUTPUT DECREASED [None]
  - WEIGHT DECREASED [None]
  - WHITE BLOOD CELL COUNT INCREASED [None]
